FAERS Safety Report 21160851 (Version 1)
Quarter: 2022Q3

REPORT INFORMATION
  Report Type: Spontaneous
  Country: US (occurrence: None)
  Receive Date: 20220801
  Receipt Date: 20220801
  Transmission Date: 20221027
  Serious: Yes (Hospitalization)
  Sender: FDA-Public Use
  Company Number: None

PATIENT
  Age: 55 Year
  Sex: Male

DRUGS (1)
  1. ALEMTUZUMAB [Suspect]
     Active Substance: ALEMTUZUMAB
     Dates: start: 20161212, end: 20161212

REACTIONS (9)
  - Muscle spasms [None]
  - Headache [None]
  - Pyrexia [None]
  - Muscular weakness [None]
  - Dizziness postural [None]
  - Hot flush [None]
  - Tachycardia [None]
  - Hypertension [None]
  - Infusion related reaction [None]

NARRATIVE: CASE EVENT DATE: 20161212
